FAERS Safety Report 14113053 (Version 1)
Quarter: 2017Q4

REPORT INFORMATION
  Report Type: Report from Study
  Country: VE (occurrence: VE)
  Receive Date: 20171022
  Receipt Date: 20171022
  Transmission Date: 20180321
  Serious: Yes (Death, Other)
  Sender: FDA-Public Use
  Company Number: PHHY2017VE153896

PATIENT
  Sex: Female

DRUGS (1)
  1. EXJADE [Suspect]
     Active Substance: DEFERASIROX
     Indication: PRODUCT USED FOR UNKNOWN INDICATION
     Route: 065

REACTIONS (9)
  - Death [Fatal]
  - Osteoporosis [Unknown]
  - Neuritis [Unknown]
  - Inflammation [Unknown]
  - Pain [Unknown]
  - Myelodysplastic syndrome [Unknown]
  - General physical health deterioration [Unknown]
  - Osteoarthritis [Unknown]
  - Fibromyalgia [Unknown]
